FAERS Safety Report 17506113 (Version 1)
Quarter: 2020Q1

REPORT INFORMATION
  Report Type: Spontaneous
  Country: IL (occurrence: IL)
  Receive Date: 20200306
  Receipt Date: 20200306
  Transmission Date: 20200409
  Serious: Yes (Other)
  Sender: FDA-Public Use
  Company Number: IL-ROCHE-2559963

PATIENT
  Age: 79 Year
  Sex: Female

DRUGS (1)
  1. MABTHERA [Suspect]
     Active Substance: RITUXIMAB
     Indication: ORGANISING PNEUMONIA
     Dosage: 10 MG/ML, 50 MG/HR FOR 90 MINUTES
     Route: 042

REACTIONS (9)
  - Heart rate increased [Unknown]
  - Haemodynamic instability [Unknown]
  - Blood pressure abnormal [Unknown]
  - Oxygen saturation decreased [Unknown]
  - Intentional product use issue [Unknown]
  - Off label use [Unknown]
  - Chills [Unknown]
  - Feeling cold [Unknown]
  - Respiratory disorder [Unknown]
